FAERS Safety Report 7283461-2 (Version None)
Quarter: 2011Q1

REPORT INFORMATION
  Report Type: 
  Country: None (occurrence: None)
  Receive Date: 20110125
  Receipt Date: 20110113
  Transmission Date: 20110831
  Serious: Yes (Death, Other)
  Sender: FDA-Public Use
  Company Number: JHP201100007

PATIENT
  Age: 68 Year
  Sex: Male

DRUGS (5)
  1. VANCOMYCIN [Concomitant]
  2. COLY-MYCIN M [Suspect]
     Indication: PNEUMONIA
     Dosage: 150 MG, TID, INTRAVENOUS
     Route: 042
  3. COLY-MYCIN M [Suspect]
     Indication: DEVICE RELATED INFECTION
     Dosage: 150 MG, TID, INTRAVENOUS
     Route: 042
  4. COLY-MYCIN M [Suspect]
     Indication: ACINETOBACTER INFECTION
     Dosage: 150 MG, TID, INTRAVENOUS
     Route: 042
  5. CEFTRIAXONE [Concomitant]

REACTIONS (2)
  - NEPHROPATHY TOXIC [None]
  - RENAL FAILURE [None]
